FAERS Safety Report 13482272 (Version 2)
Quarter: 2017Q3

REPORT INFORMATION
  Report Type: Report from Study
  Country: US (occurrence: US)
  Receive Date: 20170424
  Receipt Date: 20170728
  Transmission Date: 20171127
  Serious: Yes (Other)
  Sender: FDA-Public Use
  Company Number: US-AMGEN-USASL2017034542

PATIENT
  Age: 56 Year
  Sex: Male
  Weight: 120.18 kg

DRUGS (3)
  1. RANEXA [Concomitant]
     Active Substance: RANOLAZINE
  2. REPATHA [Suspect]
     Active Substance: EVOLOCUMAB
     Indication: BLOOD CHOLESTEROL INCREASED
     Dosage: UNK UNK, Q2WK
     Route: 058
     Dates: start: 20160709
  3. REPATHA [Suspect]
     Active Substance: EVOLOCUMAB
     Indication: ARTERIOSCLEROSIS

REACTIONS (1)
  - Muscle spasms [Recovered/Resolved]
